FAERS Safety Report 15227652 (Version 1)
Quarter: 2018Q3

REPORT INFORMATION
  Report Type: Spontaneous
  Country: US (occurrence: US)
  Receive Date: 20180706
  Receipt Date: 20180706
  Transmission Date: 20181010
  Serious: No
  Sender: FDA-Public Use
  Company Number: None

PATIENT
  Age: 38 Year
  Sex: Male
  Weight: 67.5 kg

DRUGS (2)
  1. ROPINIROLE 0.5MG [Suspect]
     Active Substance: ROPINIROLE
     Indication: RESTLESS LEGS SYNDROME
     Dosage: ?          QUANTITY:1 TABLET(S);?
     Route: 048
     Dates: start: 20170710, end: 20180630
  2. PRAMIPEXOLE. [Concomitant]
     Active Substance: PRAMIPEXOLE

REACTIONS (4)
  - Tachycardia [None]
  - Hyperkinesia [None]
  - Restlessness [None]
  - Insomnia [None]

NARRATIVE: CASE EVENT DATE: 20180615
